FAERS Safety Report 8294100-6 (Version None)
Quarter: 2012Q2

REPORT INFORMATION
  Report Type: 
  Country: None (occurrence: None)
  Receive Date: 20120418
  Receipt Date: 20120406
  Transmission Date: 20120825
  Serious: Yes (Hospitalization, Disabling)
  Sender: FDA-Public Use
  Company Number: JP-JNJFOC-20111006187

PATIENT
  Sex: Female
  Weight: 44 kg

DRUGS (9)
  1. REMICADE [Suspect]
     Route: 042
     Dates: start: 20100707
  2. REMICADE [Suspect]
     Indication: CROHN'S DISEASE
     Route: 042
     Dates: start: 20100818
  3. 5-AMINOSALICYLIC ACID [Concomitant]
     Indication: CROHN'S DISEASE
     Route: 065
  4. ALL OTHER THERAPEUTIC PRODUCTS [Concomitant]
     Indication: CROHN'S DISEASE
     Route: 065
  5. AN UNKNOWN MEDICATION [Concomitant]
     Route: 065
  6. REMICADE [Suspect]
     Route: 042
     Dates: start: 20100623
  7. MIYA-BM [Concomitant]
     Indication: CROHN'S DISEASE
     Route: 065
     Dates: start: 19980601
  8. PENTASA [Concomitant]
     Indication: CROHN'S DISEASE
     Route: 048
     Dates: start: 19980701
  9. MORPHINE HYDROCHLORIDE [Concomitant]
     Indication: PAIN
     Route: 048
     Dates: start: 20100608

REACTIONS (2)
  - RECTAL STENOSIS [None]
  - RECTAL OBSTRUCTION [None]
